FAERS Safety Report 5915312-X (Version None)
Quarter: 2008Q4

REPORT INFORMATION
  Report Type: 
  Country: None (occurrence: None)
  Receive Date: 20081010
  Receipt Date: 20081002
  Transmission Date: 20090506
  Serious: Yes (Life-Threatening, Other)
  Sender: FDA-Public Use
  Company Number: FR-BRISTOL-MYERS SQUIBB COMPANY-14356539

PATIENT
  Age: 30 Year
  Sex: Male
  Weight: 69 kg

DRUGS (4)
  1. REYATAZ [Interacting]
     Indication: HIV INFECTION
     Dates: start: 20080409
  2. NORVIR [Interacting]
     Indication: HIV INFECTION
     Dates: start: 20080409
  3. TRUVADA [Suspect]
     Indication: HIV INFECTION
     Dosage: 1 DOSAGE FORM=245/300MG
     Dates: start: 20080409
  4. BACTRIM [Suspect]
     Indication: PROPHYLAXIS
     Dosage: 1 DOSAGE FORM=800/160MG
     Dates: start: 20071015

REACTIONS (4)
  - DRUG INTERACTION [None]
  - HYPERBILIRUBINAEMIA [None]
  - JAUNDICE [None]
  - OVERDOSE [None]
